FAERS Safety Report 10896480 (Version 1)
Quarter: 2015Q1

REPORT INFORMATION
  Report Type: Spontaneous
  Country: US (occurrence: None)
  Receive Date: 20150302
  Receipt Date: 20150302
  Transmission Date: 20150721
  Serious: Yes (Death)
  Sender: FDA-Public Use
  Company Number: None

PATIENT
  Age: 68 Year
  Sex: Male
  Weight: 79.38 kg

DRUGS (3)
  1. CASCADE OF DRUGS USED TO COUNTER THE EFFECTS OF YERVOY [Concomitant]
  2. NEUT\ROPATHIC SUPPLIMENTS [Concomitant]
  3. YERVOY [Suspect]
     Active Substance: IPILIMUMAB
     Indication: MALIGNANT MELANOMA
     Dosage: 3 CM IV EVERY 3 WEEK
     Route: 042
     Dates: start: 20141202, end: 20150113

REACTIONS (3)
  - Colitis [None]
  - Toxicity to various agents [None]
  - Drug ineffective [None]

NARRATIVE: CASE EVENT DATE: 20150211
